FAERS Safety Report 18458259 (Version 1)
Quarter: 2020Q4

REPORT INFORMATION
  Report Type: Spontaneous
  Country: ES (occurrence: ES)
  Receive Date: 20201103
  Receipt Date: 20201103
  Transmission Date: 20210114
  Serious: Yes (Life-Threatening, Hospitalization)
  Sender: FDA-Public Use
  Company Number: ES-TEVA-2020-ES-1844076

PATIENT
  Age: 54 Year
  Sex: Male

DRUGS (6)
  1. THERVAN 40 MG COMPRIMIDOS RECUBIERTOS CON PELICULA EFG, 28 COMPRIMIDOS [Interacting]
     Active Substance: ATORVASTATIN CALCIUM
     Indication: DYSLIPIDAEMIA
     Route: 048
     Dates: start: 20190522
  2. PALIPERIDONA (8094A) [Interacting]
     Active Substance: PALIPERIDONE
     Indication: SCHIZOPHRENIA
     Route: 048
     Dates: start: 20190514, end: 20200525
  3. NAPROXENO (2002A) [Interacting]
     Active Substance: NAPROXEN
     Indication: ANALGESIC THERAPY
     Route: 048
     Dates: start: 20200523, end: 20200525
  4. PALIPERIDONA (8094A) [Interacting]
     Active Substance: PALIPERIDONE
     Indication: SCHIZOPHRENIA
     Route: 030
     Dates: start: 20190514, end: 20200514
  5. LISINOPRIL + HIDROCLOROTIAZIDA [Interacting]
     Active Substance: HYDROCHLOROTHIAZIDE\LISINOPRIL
     Indication: HYPERTENSION
     Route: 048
     Dates: start: 20190522
  6. OLANZAPINA (2770A) [Suspect]
     Active Substance: OLANZAPINE
     Indication: SCHIZOPHRENIA
     Route: 048
     Dates: start: 20190514

REACTIONS (3)
  - Acute kidney injury [Recovered/Resolved]
  - Drug interaction [Unknown]
  - Dizziness [Recovered/Resolved]

NARRATIVE: CASE EVENT DATE: 20200525
